FAERS Safety Report 12639711 (Version 1)
Quarter: 2016Q3

REPORT INFORMATION
  Report Type: Spontaneous
  Country: GB (occurrence: GB)
  Receive Date: 20160810
  Receipt Date: 20160810
  Transmission Date: 20161109
  Serious: Yes (Life-Threatening, Other)
  Sender: FDA-Public Use
  Company Number: GB-TEVA-682682ACC

PATIENT
  Age: 3 Decade
  Sex: Female

DRUGS (2)
  1. LAMOTRIGINE. [Suspect]
     Active Substance: LAMOTRIGINE
     Indication: ANTIDEPRESSANT THERAPY
     Route: 048
     Dates: start: 2014, end: 201607
  2. SERTRALINE [Concomitant]
     Active Substance: SERTRALINE HYDROCHLORIDE

REACTIONS (4)
  - Anxiety [Unknown]
  - Stevens-Johnson syndrome [Recovering/Resolving]
  - Rash erythematous [Recovering/Resolving]
  - Papule [Not Recovered/Not Resolved]

NARRATIVE: CASE EVENT DATE: 201606
